FAERS Safety Report 9228495 (Version 1)
Quarter: 2013Q2

REPORT INFORMATION
  Report Type: Spontaneous
  Country: US (occurrence: None)
  Receive Date: 20130411
  Receipt Date: 20130411
  Transmission Date: 20140414
  Serious: No
  Sender: FDA-Public Use
  Company Number: None

PATIENT
  Age: 32 Year
  Sex: Female

DRUGS (1)
  1. AVONEX [Suspect]
     Dosage: 30MCG WEEKLY  IM
     Route: 030
     Dates: start: 20121012, end: 20130315

REACTIONS (1)
  - Liver function test abnormal [None]
